FAERS Safety Report 18553318 (Version 5)
Quarter: 2021Q1

REPORT INFORMATION
  Report Type: Spontaneous
  Country: US (occurrence: US)
  Receive Date: 20201127
  Receipt Date: 20210324
  Transmission Date: 20210419
  Serious: No
  Sender: FDA-Public Use
  Company Number: US-GLAXOSMITHKLINE-US2020AMR229267

PATIENT
  Sex: Female

DRUGS (4)
  1. ZEJULA [Suspect]
     Active Substance: NIRAPARIB
     Dosage: 100 MG, QD
     Route: 048
  2. ZEJULA [Suspect]
     Active Substance: NIRAPARIB
     Dosage: 100 MG, QD
  3. ZEJULA [Suspect]
     Active Substance: NIRAPARIB
     Indication: OVARIAN CANCER
     Dosage: 300 MG, QD
     Route: 048
     Dates: start: 20201022, end: 20201126
  4. ZEJULA [Suspect]
     Active Substance: NIRAPARIB
     Dosage: 100 MG, QD (QPM)
     Route: 048

REACTIONS (16)
  - Loss of personal independence in daily activities [Unknown]
  - Dry mouth [Unknown]
  - Emotional disorder [Unknown]
  - Platelet count decreased [Unknown]
  - Constipation [Unknown]
  - Insomnia [Not Recovered/Not Resolved]
  - Rash [Unknown]
  - Arthralgia [Not Recovered/Not Resolved]
  - Palpitations [Unknown]
  - Skin disorder [Not Recovered/Not Resolved]
  - Nausea [Not Recovered/Not Resolved]
  - Drug monitoring procedure not performed [Unknown]
  - Gingival bleeding [Unknown]
  - Fatigue [Not Recovered/Not Resolved]
  - Haemoglobin decreased [Unknown]
  - Pruritus [Unknown]
